FAERS Safety Report 4702948-7 (Version None)
Quarter: 2005Q2

REPORT INFORMATION
  Report Type: 
  Country: None (occurrence: None)
  Receive Date: 20050627
  Receipt Date: 20050610
  Transmission Date: 20051028
  Serious: Yes (Other)
  Sender: FDA-Public Use
  Company Number: 210679

PATIENT
  Age: 28 Year
  Sex: Female

DRUGS (5)
  1. XOLAIR [Suspect]
     Indication: ASTHMA
     Dosage: 375 MG, 2/WEEK, SUBCUTANEOUS
     Route: 058
     Dates: start: 20041106
  2. STEROIDS NOS (STEROIDS NOS) [Suspect]
     Indication: DRUG USE FOR UNKNOWN INDICATION
     Dosage: ORAL
     Route: 048
  3. LAMICTAL [Concomitant]
  4. CORTICOSTEROIDS (UNK INGREDIENTS) (CORTICOSTEROID NOS) [Concomitant]
  5. ANTIBIOTICS-INTRAVENOUS (ANTIBIOTICS NOS) [Concomitant]

REACTIONS (5)
  - ASTHMA [None]
  - BALANCE DISORDER [None]
  - DISEASE RECURRENCE [None]
  - MYOPATHY STEROID [None]
  - RHINITIS ALLERGIC [None]
